FAERS Safety Report 8920763 (Version 2)
Quarter: 2013Q1

REPORT INFORMATION
  Report Type: Spontaneous
  Country: US (occurrence: US)
  Receive Date: 20121121
  Receipt Date: 20130104
  Transmission Date: 20140127
  Serious: No
  Sender: FDA-Public Use
  Company Number: US-PFIZER INC-2012292099

PATIENT
  Age: 60 Year
  Sex: Female
  Weight: 47.62 kg

DRUGS (3)
  1. ADVIL PM [Suspect]
     Indication: INSOMNIA
     Dosage: ONE TABLET DAILY
     Route: 048
     Dates: start: 2012
  2. ADVIL PM [Suspect]
     Dosage: 1 TABLET AT BED TIME
  3. LORAZEPAM [Concomitant]
     Indication: ANXIETY
     Dosage: 0.5 MG, DAILY

REACTIONS (1)
  - Tinnitus [Not Recovered/Not Resolved]
